FAERS Safety Report 4399789-X (Version None)
Quarter: 2004Q3

REPORT INFORMATION
  Report Type: 
  Country: None (occurrence: None)
  Receive Date: 20040714
  Receipt Date: 20040701
  Transmission Date: 20050211
  Serious: Yes (Hospitalization)
  Sender: FDA-Public Use
  Company Number: JP-JNJFOC-20040700641

PATIENT
  Age: 43 Year
  Sex: Male

DRUGS (2)
  1. REMICADE [Suspect]
     Indication: CROHN'S DISEASE
     Dosage: 250 MG, INTRAVENOUS
     Route: 042
     Dates: start: 20040526
  2. MERCAPTOPURINE [Concomitant]

REACTIONS (6)
  - BLOOD CULTURE POSITIVE [None]
  - CANDIDA ENDOPHTHALMITIS [None]
  - CATHETER RELATED INFECTION [None]
  - PYREXIA [None]
  - SHORT-BOWEL SYNDROME [None]
  - SYSTEMIC CANDIDA [None]
